FAERS Safety Report 13209936 (Version 1)
Quarter: 2017Q1

REPORT INFORMATION
  Report Type: Spontaneous
  Country: US (occurrence: US)
  Receive Date: 20170209
  Receipt Date: 20170209
  Transmission Date: 20170428
  Serious: No
  Sender: FDA-Public Use
  Company Number: None

PATIENT
  Age: 74 Year
  Sex: Male

DRUGS (1)
  1. NEXAVAR [Suspect]
     Active Substance: SORAFENIB
     Indication: HEPATOCELLULAR CARCINOMA
     Route: 048
     Dates: start: 20170108, end: 20170127

REACTIONS (5)
  - Abdominal pain upper [None]
  - Nausea [None]
  - Decreased appetite [None]
  - Diarrhoea [None]
  - Depressed level of consciousness [None]

NARRATIVE: CASE EVENT DATE: 20170108
